FAERS Safety Report 8272165-5 (Version None)
Quarter: 2012Q2

REPORT INFORMATION
  Report Type: 
  Country: None (occurrence: None)
  Receive Date: 20120410
  Receipt Date: 20120405
  Transmission Date: 20120825
  Serious: Yes (Death)
  Sender: FDA-Public Use
  Company Number: DE-BRISTOL-MYERS SQUIBB COMPANY-16475725

PATIENT
  Age: 3 Year

DRUGS (4)
  1. THIOTEPA [Suspect]
     Indication: MEDULLOBLASTOMA
  2. CYCLOPHOSPHAMIDE [Suspect]
     Indication: MEDULLOBLASTOMA
  3. ETOPOSIDE [Suspect]
     Indication: MEDULLOBLASTOMA
  4. CARBOPLATIN [Suspect]
     Indication: MEDULLOBLASTOMA

REACTIONS (1)
  - RESPIRATORY FAILURE [None]
